FAERS Safety Report 5706860-6 (Version None)
Quarter: 2008Q2

REPORT INFORMATION
  Report Type: 
  Country: None (occurrence: None)
  Receive Date: 20080416
  Receipt Date: 20080404
  Transmission Date: 20081010
  Serious: Yes (Other)
  Sender: FDA-Public Use
  Company Number: GB-SANOFI-SYNTHELABO-A01200803851

PATIENT
  Age: 70 Year
  Sex: Male

DRUGS (5)
  1. ONDANSETRON [Concomitant]
  2. DEXAMETHASONE [Concomitant]
     Dosage: 2 MG
  3. METHOTREXATE [Concomitant]
     Dosage: UNK
  4. INFLIXIMAB [Concomitant]
     Dosage: UNK
  5. ELOXATIN [Suspect]
     Route: 042
     Dates: start: 20080319, end: 20080319

REACTIONS (1)
  - LARYNGOSPASM [None]
